FAERS Safety Report 8006710 (Version 2)
Quarter: 2013Q3

REPORT INFORMATION
  Report Type: Report from Study
  Country: DE (occurrence: DE)
  Receive Date: 20110623
  Receipt Date: 20130906
  Transmission Date: 20140515
  Serious: Yes (Death, Life-Threatening, Other)
  Sender: FDA-Public Use
  Company Number: DE-ALEXION-A201100865

PATIENT
  Age: 2 Year
  Sex: Male

DRUGS (1)
  1. SOLIRIS [Suspect]
     Indication: HAEMOLYTIC URAEMIC SYNDROME
     Dosage: 300 MG, UNK
     Route: 042
     Dates: start: 20110605

REACTIONS (5)
  - Cardio-respiratory arrest [Fatal]
  - Haemolysis [Fatal]
  - Status epilepticus [Unknown]
  - Thrombocytopenia [Unknown]
  - Off label use [Unknown]
